FAERS Safety Report 8982416 (Version 1)
Quarter: 2012Q4

REPORT INFORMATION
  Report Type: 
  Country: US (occurrence: US)
  Receive Date: 20121212
  Receipt Date: 20121212
  Transmission Date: 20130627
  Serious: Yes (Death, Other)
  Sender: FDA-Public Use
  Company Number: US-ASTELLAS-CID000000002103176

PATIENT
  Sex: Male

DRUGS (3)
  1. AVASTIN [Suspect]
     Indication: RENAL CANCER
     Route: 065
     Dates: start: 20051116, end: 20060221
  2. AVASTIN [Suspect]
     Indication: MALIGNANT URINARY TRACT NEOPLASM
  3. TARCEVA [Suspect]
     Indication: RENAL CANCER
     Route: 065
     Dates: start: 200602, end: 20060221

REACTIONS (5)
  - Death [Fatal]
  - Bone disorder [Unknown]
  - Metastasis [Unknown]
  - Pain [Unknown]
  - Muscle spasms [Unknown]
